FAERS Safety Report 20721038 (Version 2)
Quarter: 2022Q2

REPORT INFORMATION
  Report Type: Spontaneous
  Country: US (occurrence: US)
  Receive Date: 20220418
  Receipt Date: 20220525
  Transmission Date: 20220721
  Serious: No
  Sender: FDA-Public Use
  Company Number: US-BAYER-2022A053521

PATIENT
  Age: 80 Year
  Sex: Male

DRUGS (1)
  1. ALEVE [Suspect]
     Active Substance: NAPROXEN SODIUM
     Indication: Herpes zoster
     Dosage: 1 DF, QD
     Route: 048
     Dates: start: 202205

REACTIONS (1)
  - Anxiety [Unknown]
